FAERS Safety Report 7795865-X (Version None)
Quarter: 2011Q4

REPORT INFORMATION
  Report Type: 
  Country: None (occurrence: None)
  Receive Date: 20111004
  Receipt Date: 20110916
  Transmission Date: 20120403
  Serious: No
  Sender: FDA-Public Use
  Company Number: US-B.I. PHARMACEUTICALS,INC./RIDGEFIELD-2011-BP-22392BP

PATIENT
  Sex: Male

DRUGS (5)
  1. ALTACE [Concomitant]
     Indication: HYPERTENSION
     Dates: start: 20060101
  2. DOXAZOSIN MESYLATE [Concomitant]
     Indication: POLLAKIURIA
     Dates: start: 20060101
  3. PROPRANOLOL [Concomitant]
     Indication: HYPERTENSION
     Dates: start: 19900101
  4. PRADAXA [Suspect]
     Indication: ATRIAL FIBRILLATION
     Dosage: 300 MG
     Route: 048
     Dates: start: 20110201
  5. PROBENECID [Concomitant]
     Indication: GOUT
     Dates: start: 19900101

REACTIONS (3)
  - DYSPEPSIA [None]
  - HOT FLUSH [None]
  - ERUCTATION [None]
